FAERS Safety Report 5695814-4 (Version None)
Quarter: 2008Q2

REPORT INFORMATION
  Report Type: 
  Country: None (occurrence: None)
  Receive Date: 20080407
  Receipt Date: 20080401
  Transmission Date: 20081010
  Serious: Yes (Hospitalization)
  Sender: FDA-Public Use
  Company Number: US-BAYER-200810289BCC

PATIENT
  Age: 89 Year
  Sex: Male
  Weight: 72 kg

DRUGS (1)
  1. BAYER BACK AND BODY EXTRA STRENGTH [Suspect]
     Indication: DRUG USE FOR UNKNOWN INDICATION
     Route: 048

REACTIONS (2)
  - HAEMATOMA [None]
  - HAEMORRHAGE [None]
